FAERS Safety Report 9416046 (Version 16)
Quarter: 2015Q3

REPORT INFORMATION
  Report Type: Report from Study
  Country: CA (occurrence: CA)
  Receive Date: 20130724
  Receipt Date: 20150716
  Transmission Date: 20151125
  Serious: Yes (Other)
  Sender: FDA-Public Use
  Company Number: CA-ROCHE-1251216

PATIENT
  Age: 60 Year
  Sex: Female
  Weight: 77.8 kg

DRUGS (24)
  1. OMEGA 3 [Concomitant]
     Active Substance: OMEGA-3 FATTY ACIDS
  2. LEFLUNOMIDE. [Concomitant]
     Active Substance: LEFLUNOMIDE
     Route: 048
  3. ATORVASTATIN [Concomitant]
     Active Substance: ATORVASTATIN
     Indication: DYSLIPIDAEMIA
     Route: 048
  4. SYNTHROID [Concomitant]
     Active Substance: LEVOTHYROXINE SODIUM
     Indication: HYPOTHYROIDISM
     Route: 048
  5. ACTEMRA [Suspect]
     Active Substance: TOCILIZUMAB
     Route: 042
     Dates: start: 20140107, end: 20140501
  6. PREDNISONE. [Suspect]
     Active Substance: PREDNISONE
     Route: 047
  7. ARAVA [Concomitant]
     Active Substance: LEFLUNOMIDE
  8. ADVAIR HFA [Concomitant]
     Active Substance: FLUTICASONE PROPIONATE\SALMETEROL XINAFOATE
  9. RITUXAN [Suspect]
     Active Substance: RITUXIMAB
     Indication: RHEUMATOID ARTHRITIS
     Route: 042
     Dates: start: 20140715
  10. PREDNISONE. [Suspect]
     Active Substance: PREDNISONE
     Route: 048
  11. RABEPRAZOLE [Concomitant]
     Active Substance: RABEPRAZOLE
  12. IBUPROFEN. [Concomitant]
     Active Substance: IBUPROFEN
  13. ACTEMRA [Suspect]
     Active Substance: TOCILIZUMAB
     Indication: RHEUMATOID ARTHRITIS
     Route: 042
     Dates: start: 20130306
  14. RAMIPRIL. [Concomitant]
     Active Substance: RAMIPRIL
  15. GLIBENCLAMIDE [Concomitant]
     Active Substance: GLYBURIDE
  16. LIPITOR [Concomitant]
     Active Substance: ATORVASTATIN CALCIUM
  17. TYLENOL #1 (CANADA) [Concomitant]
     Active Substance: ACETAMINOPHEN\CAFFEINE\CODEINE PHOSPHATE
     Indication: PREMEDICATION
     Route: 048
     Dates: start: 20140715
  18. BENADRYL [Concomitant]
     Active Substance: DIPHENHYDRAMINE HYDROCHLORIDE
     Indication: PREMEDICATION
     Route: 048
     Dates: start: 20140715
  19. SOLU-MEDROL [Concomitant]
     Active Substance: METHYLPREDNISOLONE SODIUM SUCCINATE
     Indication: PREMEDICATION
     Route: 042
     Dates: start: 20140715
  20. PREDNISONE. [Suspect]
     Active Substance: PREDNISONE
     Indication: PRODUCT USED FOR UNKNOWN INDICATION
     Route: 048
     Dates: end: 20140203
  21. ATROVENT [Concomitant]
     Active Substance: IPRATROPIUM BROMIDE
  22. NAPROXEN. [Concomitant]
     Active Substance: NAPROXEN
     Indication: RHEUMATOID ARTHRITIS
     Route: 048
  23. LEFLUNOMIDE. [Concomitant]
     Active Substance: LEFLUNOMIDE
     Indication: RHEUMATOID ARTHRITIS
     Route: 048
  24. METFORMIN [Concomitant]
     Active Substance: METFORMIN HYDROCHLORIDE
     Route: 048

REACTIONS (12)
  - Dry eye [Not Recovered/Not Resolved]
  - Abdominal distension [Recovering/Resolving]
  - Blood pressure increased [Unknown]
  - Diarrhoea [Recovering/Resolving]
  - Blood glucose increased [Unknown]
  - Drug effect decreased [Unknown]
  - Ulcerative keratitis [Recovering/Resolving]
  - Osteoporosis [Unknown]
  - Cough [Not Recovered/Not Resolved]
  - Lung infection [Recovered/Resolved]
  - Blood pressure increased [Unknown]
  - Rheumatoid arthritis [Unknown]

NARRATIVE: CASE EVENT DATE: 20130701
